FAERS Safety Report 15500063 (Version 5)
Quarter: 2019Q1

REPORT INFORMATION
  Report Type: Spontaneous
  Country: US (occurrence: US)
  Receive Date: 20181015
  Receipt Date: 20190218
  Transmission Date: 20190417
  Serious: Yes (Hospitalization)
  Sender: FDA-Public Use
  Company Number: PHEH2018US042990

PATIENT
  Sex: Male

DRUGS (3)
  1. AFINITOR [Suspect]
     Active Substance: EVEROLIMUS
     Indication: RENAL CANCER
     Dosage: 5 MG, QD
     Route: 048
  2. LENVATINIB [Suspect]
     Active Substance: LENVATINIB
     Indication: RENAL CANCER
     Dosage: 18 MG, QD
     Route: 048
     Dates: start: 20180925
  3. XARELTO [Concomitant]
     Active Substance: RIVAROXABAN
     Indication: PRODUCT USED FOR UNKNOWN INDICATION
     Dosage: UNK
     Route: 065

REACTIONS (9)
  - Abdominal discomfort [Recovering/Resolving]
  - Weight decreased [Recovering/Resolving]
  - Platelet count decreased [Unknown]
  - Insomnia [Unknown]
  - Decreased appetite [Unknown]
  - Pneumonitis [Recovered/Resolved]
  - Dysgeusia [Recovering/Resolving]
  - Pneumonia [Recovered/Resolved]
  - Pleural effusion [Unknown]
